FAERS Safety Report 6355424-2 (Version None)
Quarter: 2009Q3

REPORT INFORMATION
  Report Type: 
  Country: None (occurrence: None)
  Receive Date: 20090914
  Receipt Date: 20090907
  Transmission Date: 20100115
  Serious: Yes (Death)
  Sender: FDA-Public Use
  Company Number: PE-GENENTECH-289939

PATIENT
  Sex: Male
  Weight: 59 kg

DRUGS (2)
  1. BEVACIZUMAB [Suspect]
     Indication: BREAST CANCER METASTATIC
     Dosage: 795 MG, Q3W
     Route: 042
     Dates: start: 20070409
  2. CAPECITABINE [Suspect]
     Indication: BREAST CANCER METASTATIC
     Dosage: 2000 MG, UNK
     Dates: start: 20070409

REACTIONS (1)
  - SUDDEN DEATH [None]
